FAERS Safety Report 5782859-9 (Version None)
Quarter: 2008Q2

REPORT INFORMATION
  Report Type: 
  Country: None (occurrence: None)
  Receive Date: 20080624
  Receipt Date: 20080613
  Transmission Date: 20081010
  Serious: Yes (Hospitalization)
  Sender: FDA-Public Use
  Company Number: DE-JNJFOC-20080603147

PATIENT
  Age: 19 Year
  Sex: Male

DRUGS (1)
  1. HALDOL [Suspect]
     Indication: DRUG USE FOR UNKNOWN INDICATION
     Route: 042

REACTIONS (5)
  - CARDIOVASCULAR DISORDER [None]
  - DYSKINESIA [None]
  - DYSPNOEA [None]
  - HYPERTENSION [None]
  - TACHYCARDIA [None]
